FAERS Safety Report 8587551-3 (Version None)
Quarter: 2012Q3

REPORT INFORMATION
  Report Type: 
  Country: None (occurrence: None)
  Receive Date: 20120810
  Receipt Date: 20120806
  Transmission Date: 20120928
  Serious: Yes (Other)
  Sender: FDA-Public Use
  Company Number: GB-ROCHE-1094949

PATIENT
  Sex: Female

DRUGS (1)
  1. XOLAIR [Suspect]
     Indication: PRODUCT USED FOR UNKNOWN INDICATION
     Route: 065

REACTIONS (6)
  - ASTHMA [None]
  - ANGIOEDEMA [None]
  - OROPHARYNGEAL SWELLING [None]
  - SENSATION OF FOREIGN BODY [None]
  - TONGUE OEDEMA [None]
  - ANAPHYLACTIC REACTION [None]
